FAERS Safety Report 17155645 (Version 1)
Quarter: 2019Q4

REPORT INFORMATION
  Report Type: Spontaneous
  Country: US (occurrence: US)
  Receive Date: 20191215
  Receipt Date: 20191215
  Transmission Date: 20200122
  Serious: No
  Sender: FDA-Public Use
  Company Number: US-ENDO PHARMACEUTICALS INC-2019-102864

PATIENT
  Sex: Male

DRUGS (1)
  1. XIAFLEX [Suspect]
     Active Substance: COLLAGENASE CLOSTRIDIUM HISTOLYTICUM
     Indication: PEYRONIE^S DISEASE
     Dosage: UNK UNKNOWN, CYCLE 1: INJECTION 1
     Route: 026
     Dates: start: 2019

REACTIONS (2)
  - Penile erythema [Recovered/Resolved]
  - Penile burning sensation [Recovered/Resolved]

NARRATIVE: CASE EVENT DATE: 2019
